FAERS Safety Report 22239229 (Version 1)
Quarter: 2023Q2

REPORT INFORMATION
  Report Type: Spontaneous
  Country: US (occurrence: None)
  Receive Date: 20230420
  Receipt Date: 20230420
  Transmission Date: 20230722
  Serious: No
  Sender: FDA-Public Use
  Company Number: None

PATIENT
  Age: 51 Year
  Sex: Female
  Weight: 103.95 kg

DRUGS (1)
  1. OZEMPIC [Suspect]
     Active Substance: SEMAGLUTIDE
     Indication: Weight decreased
     Dosage: 1 INJECTION WEEKLY SUBCUTANEOUS
     Route: 058

REACTIONS (9)
  - Headache [None]
  - Dyspepsia [None]
  - Nausea [None]
  - Asthenia [None]
  - Insomnia [None]
  - Vomiting [None]
  - Incorrect dose administered [None]
  - Device dispensing error [None]
  - Fatigue [None]

NARRATIVE: CASE EVENT DATE: 20230418
